FAERS Safety Report 8581961 (Version 5)
Quarter: 2014Q1

REPORT INFORMATION
  Report Type: Report from Study
  Country: ES (occurrence: ES)
  Receive Date: 20120528
  Receipt Date: 20140321
  Transmission Date: 20141002
  Serious: Yes (Hospitalization, Other)
  Sender: FDA-Public Use
  Company Number: PHHO2012ES004296

PATIENT
  Age: 30 Year
  Sex: Female
  Weight: 54.5 kg

DRUGS (2)
  1. ACZ885 [Suspect]
     Indication: HYPER IGD SYNDROME
     Dosage: 300 MG, UNK
     Route: 058
     Dates: start: 20111031
  2. ARANESP [Concomitant]
     Indication: ANAEMIA
     Dosage: 100 MG, QW (/ WEEK)
     Dates: start: 20110303

REACTIONS (5)
  - Gastrointestinal haemorrhage [Recovered/Resolved]
  - Anaemia [Recovered/Resolved]
  - Peritonitis [Recovered/Resolved]
  - Bacteraemia [Recovered/Resolved]
  - Pneumonia [Recovered/Resolved]
